FAERS Safety Report 15318377 (Version 4)
Quarter: 2019Q3

REPORT INFORMATION
  Report Type: Report from Study
  Country: US (occurrence: US)
  Receive Date: 20180825
  Receipt Date: 20190822
  Transmission Date: 20191004
  Serious: Yes (Other)
  Sender: FDA-Public Use
  Company Number: PHHY2018US080545

PATIENT
  Age: 52 Year
  Sex: Female

DRUGS (1)
  1. GILENYA [Suspect]
     Active Substance: FINGOLIMOD HYDROCHLORIDE
     Indication: MULTIPLE SCLEROSIS
     Dosage: QD
     Route: 048

REACTIONS (13)
  - Lower respiratory tract infection [Recovered/Resolved]
  - Hypotension [Recovered/Resolved]
  - Musculoskeletal pain [Unknown]
  - Lymphocyte count decreased [Unknown]
  - Heart rate decreased [Recovered/Resolved]
  - Upper respiratory tract infection [Recovered/Resolved]
  - Haemangioma of skin [Unknown]
  - Seborrhoeic keratosis [Unknown]
  - Alanine aminotransferase increased [Unknown]
  - Aspartate aminotransferase increased [Unknown]
  - Melanocytic naevus [Unknown]
  - Fibrous histiocytoma [Unknown]
  - Cafe au lait spots [Unknown]

NARRATIVE: CASE EVENT DATE: 20170907
